FAERS Safety Report 4808801-2 (Version None)
Quarter: 2005Q4

REPORT INFORMATION
  Report Type: 
  Country: None (occurrence: None)
  Receive Date: 20051025
  Receipt Date: 20051019
  Transmission Date: 20060501
  Serious: Yes (Hospitalization, Disabling, Other)
  Sender: FDA-Public Use
  Company Number: US-MERCK-0510USA07968

PATIENT
  Age: 59 Year
  Sex: Female
  Weight: 91 kg

DRUGS (7)
  1. VIOXX [Suspect]
     Indication: ARTHRITIS
     Route: 048
     Dates: start: 20010101
  2. VIOXX [Suspect]
     Route: 048
     Dates: start: 20010101
  3. SINGULAIR [Concomitant]
     Route: 065
  4. ZOCOR [Concomitant]
     Route: 065
  5. PROTONIX [Concomitant]
     Route: 065
  6. PREMARIN [Concomitant]
     Route: 065
  7. NORVASC [Concomitant]
     Route: 065

REACTIONS (3)
  - BLADDER DISORDER [None]
  - CARDIAC DISORDER [None]
  - MYOCARDIAL INFARCTION [None]
